FAERS Safety Report 20019317 (Version 1)
Quarter: 2021Q4

REPORT INFORMATION
  Report Type: Spontaneous
  Country: CZ (occurrence: CZ)
  Receive Date: 20211101
  Receipt Date: 20211101
  Transmission Date: 20220304
  Serious: Yes (Hospitalization)
  Sender: FDA-Public Use
  Company Number: CZ-CELGENE-CZE-20211007094

PATIENT
  Age: 79 Year
  Sex: Female
  Weight: 76 kg

DRUGS (4)
  1. LENALIDOMIDE [Suspect]
     Active Substance: LENALIDOMIDE
     Indication: Plasma cell myeloma
     Dosage: 10 MILLIGRAM
     Route: 048
     Dates: start: 20190702, end: 20211012
  2. DEXAMETHASONE [Suspect]
     Active Substance: DEXAMETHASONE
     Indication: Plasma cell myeloma
     Dosage: 20 MILLIGRAM
     Route: 048
     Dates: start: 20190702, end: 20211008
  3. DARATUMUMAB [Suspect]
     Active Substance: DARATUMUMAB
     Indication: Plasma cell myeloma
     Dosage: 1800 MILLIGRAM
     Route: 058
     Dates: start: 20190702, end: 20190813
  4. BORTEZOMIB [Suspect]
     Active Substance: BORTEZOMIB
     Indication: Plasma cell myeloma
     Dosage: 1.3 MILLIGRAM/SQ. METER
     Route: 058
     Dates: start: 20190702, end: 20191203

REACTIONS (1)
  - Subdural haematoma [Not Recovered/Not Resolved]

NARRATIVE: CASE EVENT DATE: 20211013
